FAERS Safety Report 17008983 (Version 1)
Quarter: 2019Q4

REPORT INFORMATION
  Report Type: Spontaneous
  Country: NG (occurrence: NG)
  Receive Date: 20191108
  Receipt Date: 20191108
  Transmission Date: 20200122
  Serious: Yes (Death)
  Sender: FDA-Public Use
  Company Number: NG-SCIEGEN PHARMACEUTICALS INC-2019SCILIT00343

PATIENT

DRUGS (5)
  1. ZIDOVUDINE. [Suspect]
     Active Substance: ZIDOVUDINE
  2. LAMIVUDINE. [Suspect]
     Active Substance: LAMIVUDINE
  3. COTRIMOXAZOLE [Concomitant]
     Active Substance: SULFAMETHOXAZOLE\TRIMETHOPRIM
  4. NEVIRAPINE TABLETS [Suspect]
     Active Substance: NEVIRAPINE
  5. MULTIVITAMINS AND MINERALS [Concomitant]
     Active Substance: MINERALS\VITAMINS

REACTIONS (1)
  - Anaemia [Fatal]
